FAERS Safety Report 24339312 (Version 1)
Quarter: 2024Q3

REPORT INFORMATION
  Report Type: Spontaneous
  Country: CN (occurrence: CN)
  Receive Date: 20240919
  Receipt Date: 20240919
  Transmission Date: 20241017
  Serious: Yes (Other)
  Sender: BAYER
  Company Number: CN-BAYER-2024A133609

PATIENT
  Age: 24 Year
  Sex: Male

DRUGS (1)
  1. ULTRAVIST [Suspect]
     Active Substance: IOPROMIDE
     Indication: Imaging procedure
     Dosage: 80 ML, ONCE
     Route: 042
     Dates: start: 20240912, end: 20240912

REACTIONS (5)
  - Contrast media allergy [Recovering/Resolving]
  - Rash erythematous [Recovering/Resolving]
  - Sensation of foreign body [Recovering/Resolving]
  - Dysphagia [Recovering/Resolving]
  - Blood pressure increased [None]

NARRATIVE: CASE EVENT DATE: 20240912
